FAERS Safety Report 15760071 (Version 1)
Quarter: 2018Q4

REPORT INFORMATION
  Report Type: Spontaneous
  Country: US (occurrence: US)
  Receive Date: 20181226
  Receipt Date: 20181226
  Transmission Date: 20190205
  Serious: No
  Sender: FDA-Public Use
  Company Number: US-TORRENT-00005287

PATIENT

DRUGS (1)
  1. SILDENAFIL CITRATE TABLET [Suspect]
     Active Substance: SILDENAFIL CITRATE
     Indication: PRODUCT USED FOR UNKNOWN INDICATION
     Dosage: THREE 20 MG TABLETS

REACTIONS (1)
  - Drug ineffective [Unknown]
